FAERS Safety Report 4533150-X (Version None)
Quarter: 2005Q1

REPORT INFORMATION
  Report Type: 
  Country: None (occurrence: None)
  Receive Date: 20041206
  Receipt Date: 20041022
  Transmission Date: 20050727
  Serious: No
  Sender: FDA-Public Use
  Company Number: USA041081986

PATIENT
  Age: 81 Year
  Sex: Female

DRUGS (3)
  1. CYMBALTA [Suspect]
     Indication: DEPRESSION
     Dosage: 30 MG AT BEDTIME
     Dates: start: 20041018
  2. NORVASC [Concomitant]
  3. ZANTAC [Concomitant]

REACTIONS (1)
  - INSOMNIA [None]
